FAERS Safety Report 7333073-7 (Version None)
Quarter: 2011Q1

REPORT INFORMATION
  Report Type: 
  Country: None (occurrence: None)
  Receive Date: 20110304
  Receipt Date: 20110301
  Transmission Date: 20110831
  Serious: Yes (Death, Other)
  Sender: FDA-Public Use
  Company Number: DE-GENZYME-CAMP-1001385

PATIENT
  Age: 71 Year
  Sex: Female

DRUGS (6)
  1. VINCRISTINE [Suspect]
     Indication: PERIPHERAL T-CELL LYMPHOMA UNSPECIFIED
     Dosage: 6 COURSES, EACH AT 14 DAY INTERVALS
     Route: 065
  2. PREDNISONE [Suspect]
     Indication: PERIPHERAL T-CELL LYMPHOMA UNSPECIFIED
     Dosage: 6 COURSES, EACH AT 14 DAY INTERVALS
     Route: 065
  3. DOXORUBICIN [Suspect]
     Indication: PERIPHERAL T-CELL LYMPHOMA UNSPECIFIED
     Dosage: 6 COURSES, EACH AT 14 DAY INTERVALS
     Route: 065
  4. NEUPOGEN [Suspect]
     Indication: PERIPHERAL T-CELL LYMPHOMA UNSPECIFIED
     Dosage: 6 COURSES, EACH AT 14 DAY INTERVALS
     Route: 065
  5. CYCLOPHOSPHAMIDE [Suspect]
     Indication: PERIPHERAL T-CELL LYMPHOMA UNSPECIFIED
     Dosage: 6 COURSES, EACH AT 14 DAY INTERVALS
     Route: 065
  6. CAMPATH [Suspect]
     Indication: PERIPHERAL T-CELL LYMPHOMA UNSPECIFIED
     Dosage: 30 MG, DAY 1 OF COURSES 1 THROUGH 4 OF CHOP REGIMEN
     Route: 058

REACTIONS (2)
  - GENERAL PHYSICAL HEALTH DETERIORATION [None]
  - DIFFUSE LARGE B-CELL LYMPHOMA [None]
